FAERS Safety Report 8794500 (Version 1)
Quarter: 2012Q4

REPORT INFORMATION
  Report Type: 
  Country: EC (occurrence: EC)
  Receive Date: 20120917
  Receipt Date: 20120917
  Transmission Date: 20130627
  Serious: Yes (Other)
  Sender: FDA-Public Use
  Company Number: PHHY2012EC080155

PATIENT
  Sex: Male

DRUGS (1)
  1. DIOVAN HCT [Suspect]
     Indication: HYPERTENSION
     Dosage: 1 DF (160mg vals/ 25mg HCTZ), daily
     Route: 048
     Dates: start: 20080901

REACTIONS (1)
  - Ear neoplasm [Recovered/Resolved]
